FAERS Safety Report 9773307 (Version 2)
Quarter: 2013Q4

REPORT INFORMATION
  Report Type: Spontaneous
  Country: DK (occurrence: IT)
  Receive Date: 20131219
  Receipt Date: 20131230
  Transmission Date: 20140711
  Serious: Yes (Hospitalization)
  Sender: FDA-Public Use
  Company Number: IT-FRI-1000052315

PATIENT
  Age: 92 Year
  Sex: Male

DRUGS (2)
  1. ESCITALOPRAM [Suspect]
     Indication: DEPRESSION
     Dosage: 1 DF
     Route: 048
     Dates: start: 20130910, end: 20130917
  2. COUMADIN 5 MG COMPRESSE [Concomitant]
     Route: 048

REACTIONS (4)
  - Asthenia [Unknown]
  - Injury [Unknown]
  - Presyncope [Unknown]
  - Wound [Unknown]
